FAERS Safety Report 7232815-9 (Version None)
Quarter: 2011Q1

REPORT INFORMATION
  Report Type: 
  Country: None (occurrence: None)
  Receive Date: 20110110
  Receipt Date: 20110103
  Transmission Date: 20110831
  Serious: Yes (Hospitalization)
  Sender: FDA-Public Use
  Company Number: 024734

PATIENT
  Age: 30 Year
  Sex: Female
  Weight: 43 kg

DRUGS (2)
  1. LACOSAMIDE [Suspect]
     Indication: EPILEPSY
     Dosage: (100 MG BID ORAL)  ; (200 MG BID ORAL)
     Route: 048
     Dates: start: 20101201, end: 20101223
  2. LACOSAMIDE [Suspect]
     Indication: EPILEPSY
     Dosage: (100 MG BID ORAL)  ; (200 MG BID ORAL)
     Route: 048
     Dates: start: 20101223, end: 20101201

REACTIONS (9)
  - VOMITING [None]
  - PARAESTHESIA [None]
  - HYPOPHAGIA [None]
  - FALL [None]
  - OEDEMA PERIPHERAL [None]
  - DECREASED APPETITE [None]
  - MOVEMENT DISORDER [None]
  - DIZZINESS [None]
  - DIPLOPIA [None]
